FAERS Safety Report 16334929 (Version 3)
Quarter: 2019Q2

REPORT INFORMATION
  Report Type: Report from Study
  Country: MX (occurrence: MX)
  Receive Date: 20190520
  Receipt Date: 20190530
  Transmission Date: 20190711
  Serious: Yes (Other)
  Sender: FDA-Public Use
  Company Number: PHHY2019MX114912

PATIENT
  Sex: Female
  Weight: 69 kg

DRUGS (3)
  1. CO-DIOVAN [Suspect]
     Active Substance: HYDROCHLOROTHIAZIDE\VALSARTAN
     Indication: HYPERTENSION
     Dosage: 1 DF (HYDROCHLOROTHIAZIDE 12.5 MG, VALSARTAN 320 MG), QD (7 YEARS AGO)
     Route: 048
  2. PRESONE [Concomitant]
     Indication: BLOOD PRESSURE INADEQUATELY CONTROLLED
     Dosage: 50 MG, QD (AT NIGHT)
     Route: 048
  3. TEMERIT [Concomitant]
     Active Substance: NEBIVOLOL
     Indication: ISCHAEMIC HEART DISEASE PROPHYLAXIS
     Dosage: 0.25 MG, BID (MORNING AND NIGHT) (6 YEARS AGO)
     Route: 048

REACTIONS (9)
  - Ear disorder [Recovered/Resolved]
  - Decreased appetite [Not Recovered/Not Resolved]
  - Spinal disorder [Unknown]
  - Dizziness [Not Recovered/Not Resolved]
  - Facial paralysis [Recovered/Resolved]
  - Cataract [Unknown]
  - Visual impairment [Unknown]
  - Eye disorder [Recovered/Resolved]
  - Memory impairment [Not Recovered/Not Resolved]
